FAERS Safety Report 20474687 (Version 2)
Quarter: 2022Q1

REPORT INFORMATION
  Report Type: Spontaneous
  Country: US (occurrence: US)
  Receive Date: 20220215
  Receipt Date: 20220324
  Transmission Date: 20220424
  Serious: No
  Sender: FDA-Public Use
  Company Number: US-GSKCCFUS-Case-01293507_AE-75380

PATIENT
  Sex: Female

DRUGS (1)
  1. VENTOLIN HFA [Suspect]
     Active Substance: ALBUTEROL SULFATE
     Indication: Product used for unknown indication
     Dosage: 18 G, AS NEEDED
     Route: 055

REACTIONS (3)
  - Device use error [Unknown]
  - Drug ineffective [Not Recovered/Not Resolved]
  - Product complaint [Unknown]
